FAERS Safety Report 4822937-1 (Version None)
Quarter: 2005Q4

REPORT INFORMATION
  Report Type: 
  Country: None (occurrence: None)
  Receive Date: 20051104
  Receipt Date: 20051020
  Transmission Date: 20060501
  Serious: Yes (Hospitalization, Other)
  Sender: FDA-Public Use
  Company Number: USA-2005-0020856

PATIENT
  Age: 30 Year
  Sex: Female
  Weight: 88.9 kg

DRUGS (8)
  1. OXYCONTIN [Suspect]
     Indication: PAIN
     Dosage: 20 MG, TID
  2. LORCET-HD [Concomitant]
  3. VALIUM [Concomitant]
  4. BEXTRA [Concomitant]
  5. WELLBUTRIN [Concomitant]
  6. ZITHROMAX [Concomitant]
  7. XANAX [Concomitant]
  8. ESTROGENS [Concomitant]

REACTIONS (28)
  - ABDOMINAL ADHESIONS [None]
  - ABDOMINAL PAIN LOWER [None]
  - ANXIETY [None]
  - ARTHROPATHY [None]
  - BACK INJURY [None]
  - BUTTOCK PAIN [None]
  - CERVICAL DYSPLASIA [None]
  - DELUSIONAL DISORDER, UNSPECIFIED TYPE [None]
  - DEPRESSION [None]
  - DRUG DEPENDENCE [None]
  - DRUG INEFFECTIVE [None]
  - DRUG TOLERANCE [None]
  - DRUG WITHDRAWAL SYNDROME [None]
  - DYSPEPSIA [None]
  - INTERVERTEBRAL DISC DEGENERATION [None]
  - IRRITABILITY [None]
  - MASS [None]
  - MUSCULOSKELETAL CHEST PAIN [None]
  - NECK PAIN [None]
  - OBSESSIVE-COMPULSIVE DISORDER [None]
  - PAIN [None]
  - PAIN IN EXTREMITY [None]
  - PARANOIA [None]
  - PELVIC PAIN [None]
  - PELVIC PERITONEAL ADHESIONS [None]
  - POST LAMINECTOMY SYNDROME [None]
  - RADICULOPATHY [None]
  - WEIGHT INCREASED [None]
